FAERS Safety Report 6130848-7 (Version None)
Quarter: 2009Q1

REPORT INFORMATION
  Report Type: 
  Country: None (occurrence: None)
  Receive Date: 20090325
  Receipt Date: 20090310
  Transmission Date: 20090719
  Serious: Yes (Other)
  Sender: FDA-Public Use
  Company Number: US-PFIZER INC-2006102269

PATIENT
  Sex: Female
  Weight: 100 kg

DRUGS (7)
  1. PROVERA [Suspect]
     Indication: HORMONE REPLACEMENT THERAPY
     Dosage: 5 MG, UNK
     Route: 048
     Dates: start: 19940801
  2. PROVERA [Suspect]
     Route: 048
     Dates: start: 19960101, end: 19960701
  3. PREMPHASE 14/14 [Suspect]
     Indication: HORMONE REPLACEMENT THERAPY
     Dosage: UNK MG, UNK
     Route: 065
     Dates: start: 19951001, end: 20011001
  4. PREMARIN [Suspect]
     Dosage: 0.625 MG, UNK
     Dates: start: 20011003
  5. ORTHO-EST [Suspect]
     Dosage: 1.25 MG, UNK
     Dates: start: 19940802, end: 19951023
  6. ESTRADERM [Suspect]
     Dosage: 0.1 MG, UNK
     Dates: start: 19940912, end: 19950215
  7. CLIMARA [Suspect]
     Dosage: 0.05 MG, UNK
     Dates: start: 19960118, end: 19960729

REACTIONS (1)
  - BREAST CANCER [None]
